FAERS Safety Report 11098373 (Version 2)
Quarter: 2015Q2

REPORT INFORMATION
  Report Type: Spontaneous
  Country: AR (occurrence: AR)
  Receive Date: 20150507
  Receipt Date: 20150526
  Transmission Date: 20150821
  Serious: Yes (Hospitalization)
  Sender: FDA-Public Use
  Company Number: PHHY2015AR055064

PATIENT
  Age: 57 Year
  Sex: Male

DRUGS (1)
  1. ZELMAC [Suspect]
     Active Substance: TEGASEROD
     Indication: IRRITABLE BOWEL SYNDROME
     Dosage: 2 DF, QD
     Route: 065
     Dates: start: 2003, end: 2003

REACTIONS (3)
  - Colon cancer [Recovered/Resolved]
  - Nervousness [Not Recovered/Not Resolved]
  - Irritable bowel syndrome [Unknown]

NARRATIVE: CASE EVENT DATE: 201405
